FAERS Safety Report 7506408-X (Version None)
Quarter: 2011Q2

REPORT INFORMATION
  Report Type: 
  Country: None (occurrence: None)
  Receive Date: 20110520
  Receipt Date: 20110401
  Transmission Date: 20111010
  Serious: No
  Sender: FDA-Public Use
  Company Number: 2011-00157

PATIENT
  Age: 67 Year
  Sex: Female
  Weight: 58.9676 kg

DRUGS (3)
  1. ZICAM COLD REMEDY NASAL GEL [Suspect]
     Dosage: AS DIRECTED, 3 DAYS
     Dates: start: 20101201, end: 20101201
  2. NASAL SPRAY [Concomitant]
  3. LORATADINE [Concomitant]

REACTIONS (2)
  - ANOSMIA [None]
  - AGEUSIA [None]
